FAERS Safety Report 9374920 (Version 2)
Quarter: 2013Q3

REPORT INFORMATION
  Report Type: Report from Study
  Country: CA (occurrence: CA)
  Receive Date: 20130628
  Receipt Date: 20130715
  Transmission Date: 20140515
  Serious: Yes (Hospitalization)
  Sender: FDA-Public Use
  Company Number: CA-JNJFOC-20130616014

PATIENT
  Age: 66 Year
  Sex: Male
  Weight: 85.2 kg

DRUGS (5)
  1. REMICADE [Suspect]
     Indication: COLITIS ULCERATIVE
     Route: 042
     Dates: start: 20130509
  2. THYROXIN T3 [Concomitant]
     Route: 065
  3. ASACOL [Concomitant]
     Route: 065
  4. SULFASALAZINE [Concomitant]
     Route: 065
  5. PREDNISONE [Concomitant]
     Route: 065
     Dates: end: 20130523

REACTIONS (2)
  - Thyroidectomy [Recovering/Resolving]
  - Incision site complication [Recovering/Resolving]
